FAERS Safety Report 16536966 (Version 3)
Quarter: 2019Q3

REPORT INFORMATION
  Report Type: Spontaneous
  Country: DE (occurrence: DE)
  Receive Date: 20190707
  Receipt Date: 20190920
  Transmission Date: 20191004
  Serious: Yes (Hospitalization)
  Sender: FDA-Public Use
  Company Number: PHHY2019DE151713

PATIENT
  Age: 8 Year
  Sex: Male
  Weight: 82 kg

DRUGS (15)
  1. BISOPROLOL [Concomitant]
     Active Substance: BISOPROLOL
     Indication: HYPERTENSION
     Dosage: 5 MG, QD
     Route: 048
  2. NOVALGIN [Concomitant]
     Indication: TUMOUR PAIN
     Dosage: UNK, PRN (AS NEEDED)
     Route: 048
  3. ABRAXANE [Suspect]
     Active Substance: PACLITAXEL
     Dosage: 2 OT, QW
     Route: 041
     Dates: start: 2019
  4. ABRAXANE [Suspect]
     Active Substance: PACLITAXEL
     Dosage: 2 OT, QW
     Route: 041
     Dates: start: 20190307, end: 20190321
  5. ORAMORPH [Concomitant]
     Active Substance: MORPHINE SULFATE
     Indication: TUMOUR PAIN
     Dosage: UNK
     Route: 048
  6. MST [Concomitant]
     Indication: TUMOUR PAIN
     Dosage: 20 MG, QD
     Route: 048
     Dates: start: 20190409
  7. CARBOPLATIN. [Suspect]
     Active Substance: CARBOPLATIN
     Indication: NON-SMALL CELL LUNG CANCER
     Dosage: 6 MG, UNK
     Route: 041
  8. NEUROCIL [Concomitant]
     Indication: TUMOUR PAIN
     Dosage: 6 OT, QD (59994 UNKNOWN)
     Route: 048
  9. PARACODIN [Concomitant]
     Indication: PROPHYLAXIS
     Dosage: UNK, PRN (AS NEEDED)
     Route: 048
  10. VOMEX A [Concomitant]
     Active Substance: DIMENHYDRINATE
     Indication: PROPHYLAXIS
     Dosage: UNK, PRN (AS NEEDED)
     Route: 048
  11. ABRAXANE [Suspect]
     Active Substance: PACLITAXEL
     Indication: NON-SMALL CELL LUNG CANCER
     Dosage: 200 MG/M2, UNK
     Route: 041
     Dates: start: 20190131
  12. ABRAXANE [Suspect]
     Active Substance: PACLITAXEL
     Dosage: 200 MG/M2, QW
     Route: 041
     Dates: start: 20190221
  13. LAXOBERAL [Concomitant]
     Active Substance: SODIUM PICOSULFATE
     Indication: PROPHYLAXIS
     Dosage: UNK, PRN (AS NEEDED)
     Route: 048
  14. TAVOR [Concomitant]
     Indication: TUMOUR PAIN
     Dosage: 1 MG, UNK
     Route: 048
  15. CANDECOR [Concomitant]
     Active Substance: CANDESARTAN CILEXETIL
     Indication: HYPERTENSION
     Dosage: 15 MG, QD
     Route: 048

REACTIONS (4)
  - General physical health deterioration [Recovered/Resolved]
  - Leukopenia [Recovered/Resolved]
  - Nausea [Recovered/Resolved]
  - General physical health deterioration [Recovered/Resolved]

NARRATIVE: CASE EVENT DATE: 20190224
